FAERS Safety Report 18372925 (Version 6)
Quarter: 2021Q1

REPORT INFORMATION
  Report Type: Report from Study
  Country: None (occurrence: US)
  Receive Date: 20201012
  Receipt Date: 20210302
  Transmission Date: 20210419
  Serious: Yes (Other)
  Sender: FDA-Public Use
  Company Number: US-ABBVIE-20K-163-3596920-00

PATIENT
  Age: 69 Year
  Sex: Female
  Weight: 74.91 kg

DRUGS (6)
  1. ATORVASTATIN [Concomitant]
     Active Substance: ATORVASTATIN
     Indication: BLOOD CHOLESTEROL
  2. RINVOQ [Suspect]
     Active Substance: UPADACITINIB
     Route: 048
  3. BABY ASPIRIN [Concomitant]
     Active Substance: ASPIRIN
     Indication: PRODUCT USED FOR UNKNOWN INDICATION
  4. METOPROLOL. [Concomitant]
     Active Substance: METOPROLOL
     Indication: HYPERTENSION
  5. RINVOQ [Suspect]
     Active Substance: UPADACITINIB
     Route: 048
  6. RINVOQ [Suspect]
     Active Substance: UPADACITINIB
     Indication: RHEUMATOID ARTHRITIS
     Route: 048
     Dates: start: 201909

REACTIONS (16)
  - Inflammation [Not Recovered/Not Resolved]
  - Wrist fracture [Recovered/Resolved]
  - Presyncope [Unknown]
  - Joint dislocation [Recovered/Resolved]
  - Fall [Recovered/Resolved]
  - Arthritis [Recovering/Resolving]
  - Musculoskeletal disorder [Not Recovered/Not Resolved]
  - Thyroid function test abnormal [Unknown]
  - Heart rate increased [Recovered/Resolved]
  - Arthralgia [Recovered/Resolved]
  - Muscular weakness [Recovered/Resolved]
  - Hypertension [Recovered/Resolved]
  - Blood thyroid stimulating hormone increased [Unknown]
  - Auditory disorder [Recovered/Resolved]
  - Pain in extremity [Not Recovered/Not Resolved]
  - Hypotension [Recovered/Resolved]

NARRATIVE: CASE EVENT DATE: 2020
